FAERS Safety Report 5521934-0 (Version None)
Quarter: 2007Q4

REPORT INFORMATION
  Report Type: 
  Country: None (occurrence: None)
  Receive Date: 20071120
  Receipt Date: 20070105
  Transmission Date: 20080405
  Serious: No
  Sender: FDA-Public Use
  Company Number: US-BRISTOL-MYERS SQUIBB COMPANY-13634217

PATIENT
  Age: 61 Year
  Sex: Female
  Weight: 82 kg

DRUGS (4)
  1. AVALIDE [Suspect]
     Indication: HYPERTENSION
     Dosage: DECREASED TO DAILY (NOT BID) IN 9/2006.
  2. ASPIRIN [Concomitant]
  3. PRAVACHOL [Concomitant]
     Indication: BLOOD CHOLESTEROL INCREASED
  4. VYTORIN [Concomitant]

REACTIONS (10)
  - ABDOMINAL PAIN [None]
  - ASTHENIA [None]
  - CHILLS [None]
  - COUGH [None]
  - DIZZINESS [None]
  - DYSPHONIA [None]
  - FATIGUE [None]
  - INSOMNIA [None]
  - MEMORY IMPAIRMENT [None]
  - MUSCULOSKELETAL PAIN [None]
